FAERS Safety Report 5360548-2 (Version None)
Quarter: 2007Q2

REPORT INFORMATION
  Report Type: 
  Country: None (occurrence: None)
  Receive Date: 20070530
  Receipt Date: 20070327
  Transmission Date: 20071010
  Serious: No
  Sender: FDA-Public Use
  Company Number: 2007PV032519

PATIENT
  Age: 62 Year
  Sex: Female

DRUGS (9)
  1. BYETTA [Suspect]
     Indication: METABOLIC SYNDROME
     Dosage: 10;10 MCG;BID;SC; 5 MCG;SC
     Route: 058
     Dates: start: 20051101, end: 20060101
  2. BYETTA [Suspect]
     Indication: METABOLIC SYNDROME
     Dosage: 10;10 MCG;BID;SC; 5 MCG;SC
     Route: 058
     Dates: start: 20060101, end: 20060901
  3. BYETTA [Suspect]
     Indication: METABOLIC SYNDROME
     Dosage: 10;10 MCG;BID;SC; 5 MCG;SC
     Route: 058
     Dates: start: 20070325
  4. AVAPRO [Concomitant]
  5. SYNTHROID [Concomitant]
  6. ALLEGRA [Concomitant]
  7. ASTELIN [Concomitant]
  8. STEROID PUMP [Concomitant]
  9. XANAX [Concomitant]

REACTIONS (3)
  - FEELING HOT [None]
  - NAUSEA [None]
  - VOMITING [None]
